FAERS Safety Report 13073197 (Version 1)
Quarter: 2016Q4

REPORT INFORMATION
  Report Type: Spontaneous
  Country: NO (occurrence: NO)
  Receive Date: 20161229
  Receipt Date: 20161229
  Transmission Date: 20170207
  Serious: Yes (Death)
  Sender: FDA-Public Use
  Company Number: NO-BAYER-2016-241757

PATIENT
  Age: 72 Year
  Sex: Female

DRUGS (1)
  1. PRIMOVIST [Suspect]
     Active Substance: GADOXETATE DISODIUM
     Indication: NUCLEAR MAGNETIC RESONANCE IMAGING
     Dosage: 9 ML, UNK
     Route: 042
     Dates: start: 20161121, end: 20161121

REACTIONS (5)
  - Loss of consciousness [Fatal]
  - Malaise [Fatal]
  - Respiratory arrest [Fatal]
  - Nausea [Fatal]
  - Cardiac arrest [Fatal]

NARRATIVE: CASE EVENT DATE: 20161121
